FAERS Safety Report 16999647 (Version 3)
Quarter: 2019Q4

REPORT INFORMATION
  Report Type: Spontaneous
  Country: JP (occurrence: JP)
  Receive Date: 20191106
  Receipt Date: 20191220
  Transmission Date: 20200122
  Serious: Yes (Other)
  Sender: FDA-Public Use
  Company Number: JP-PFIZER INC-2019470511

PATIENT
  Age: 79 Year
  Sex: Female
  Weight: 58 kg

DRUGS (12)
  1. SYMPROIC [Concomitant]
     Active Substance: NALDEMEDINE
     Indication: VOMITING
  2. FERRUM [Concomitant]
     Active Substance: FERROUS FUMARATE
     Indication: ANAEMIA
     Dosage: 1 MG, 1X/DAY
     Route: 048
  3. FENTOS [Suspect]
     Active Substance: FENTANYL
     Indication: CANCER PAIN
     Dosage: 6 MG, 1X/DAY
     Route: 062
     Dates: start: 20191015, end: 20191023
  4. DOMPERIDONE [Concomitant]
     Active Substance: DOMPERIDONE
     Indication: VOMITING
  5. SOLANAX [Suspect]
     Active Substance: ALPRAZOLAM
     Indication: ANXIETY
     Dosage: 0.4 MG, 2X/DAY
     Route: 048
     Dates: start: 20191015, end: 20191016
  6. SYMPROIC [Concomitant]
     Active Substance: NALDEMEDINE
     Indication: NAUSEA
     Dosage: 0.2 MG, 1X/DAY
     Route: 048
     Dates: start: 20190905
  7. BELSOMRA [Concomitant]
     Active Substance: SUVOREXANT
     Dosage: 15 MG, 1X/DAY
     Route: 048
     Dates: start: 20191015
  8. DOMPERIDONE [Concomitant]
     Active Substance: DOMPERIDONE
     Indication: NAUSEA
     Dosage: 10 MG, 2X/DAY
     Route: 048
     Dates: start: 20190827
  9. CELECOX [Concomitant]
     Active Substance: CELECOXIB
     Indication: CANCER PAIN
     Dosage: 100 MG, 2X/DAY
     Route: 048
  10. REBAMIPIDE [Concomitant]
     Active Substance: REBAMIPIDE
     Indication: CANCER PAIN
     Dosage: 100 MG, 2X/DAY
     Route: 048
  11. ZOLPIDEM [Concomitant]
     Active Substance: ZOLPIDEM TARTRATE
     Indication: INSOMNIA
     Dosage: 5 MG, ONCE AT ONSET OF SLEEPLESSNESS
     Route: 048
  12. BELSOMRA [Concomitant]
     Active Substance: SUVOREXANT
     Indication: INSOMNIA
     Dosage: 15 MG, ONCE AT ONSET OF SLEEPLESSNESS
     Route: 048
     Dates: end: 20191014

REACTIONS (1)
  - Delirium [Recovered/Resolved]

NARRATIVE: CASE EVENT DATE: 20191015
